FAERS Safety Report 11338052 (Version 1)
Quarter: 2015Q3

REPORT INFORMATION
  Report Type: Spontaneous
  Country: US (occurrence: US)
  Receive Date: 20150803
  Receipt Date: 20150803
  Transmission Date: 20151125
  Serious: Yes (Hospitalization, Disabling, Other)
  Sender: FDA-Public Use
  Company Number: US-ELI_LILLY_AND_COMPANY-US200911004743

PATIENT
  Age: 52 Year
  Sex: Male
  Weight: 132.74 kg

DRUGS (13)
  1. ZYPREXA [Suspect]
     Active Substance: OLANZAPINE
     Dosage: 20 MG, EACH EVENING
     Route: 048
     Dates: start: 20060316, end: 20080315
  2. ZYPREXA [Suspect]
     Active Substance: OLANZAPINE
     Dosage: 15 MG, 2/D
     Route: 048
     Dates: start: 20051129, end: 20071201
  3. ZYPREXA [Suspect]
     Active Substance: OLANZAPINE
     Dosage: 15 MG, DAILY (1/D)
     Route: 048
     Dates: start: 20060516, end: 20100123
  4. PERPHENAZINE. [Concomitant]
     Active Substance: PERPHENAZINE
     Indication: SCHIZOAFFECTIVE DISORDER
     Dosage: 8 MG, 2/D
     Route: 048
     Dates: start: 20080421, end: 20100212
  5. CHLORDIAZEPOXIDE HYDROCHLORIDE. [Concomitant]
     Active Substance: CHLORDIAZEPOXIDE HYDROCHLORIDE
     Dosage: 10 MG, 2/D
     Route: 048
     Dates: start: 20070315, end: 20070915
  6. PERPHENAZINE. [Concomitant]
     Active Substance: PERPHENAZINE
     Dosage: 32 MG, DAILY (1/D)
     Route: 048
     Dates: start: 20070111, end: 20081024
  7. NICOTINE. [Concomitant]
     Active Substance: NICOTINE
  8. THIORIDAZINE [Concomitant]
     Active Substance: THIORIDAZINE
     Dosage: 25 MG, EACH EVENING
     Dates: start: 20050527, end: 20060528
  9. ZYPREXA [Suspect]
     Active Substance: OLANZAPINE
     Indication: SCHIZOAFFECTIVE DISORDER
     Dosage: 1 D/F, UNK
     Dates: start: 2005, end: 2009
  10. AMITRIPTYLINE [Concomitant]
     Active Substance: AMITRIPTYLINE
     Dosage: 25 MG, EACH EVENING
     Route: 048
     Dates: start: 20050527, end: 20060528
  11. ZYPREXA [Suspect]
     Active Substance: OLANZAPINE
     Dosage: 5 MG, 3/D
     Route: 048
     Dates: start: 20070326, end: 20080326
  12. CHLORDIAZEPOXIDE HYDROCHLORIDE. [Concomitant]
     Active Substance: CHLORDIAZEPOXIDE HYDROCHLORIDE
     Indication: SCHIZOAFFECTIVE DISORDER
     Dosage: 10 MG, EACH EVENING
     Route: 048
     Dates: start: 20070305, end: 20070905
  13. ZYPREXA [Suspect]
     Active Substance: OLANZAPINE
     Dosage: 10 MG, 4/D
     Route: 048
     Dates: start: 20050916, end: 20060917

REACTIONS (10)
  - Prescribed overdose [Recovered/Resolved]
  - Obesity [Not Recovered/Not Resolved]
  - Erectile dysfunction [Not Recovered/Not Resolved]
  - Blood triglycerides abnormal [Unknown]
  - Diabetes mellitus [Not Recovered/Not Resolved]
  - Blood cholesterol increased [Unknown]
  - Blood glucose increased [Unknown]
  - Weight decreased [Unknown]
  - Weight increased [Unknown]
  - Hypoglycaemia [Unknown]

NARRATIVE: CASE EVENT DATE: 2005
